FAERS Safety Report 6464960-X (Version None)
Quarter: 2009Q4

REPORT INFORMATION
  Report Type: 
  Country: None (occurrence: None)
  Receive Date: 20091201
  Receipt Date: 20091102
  Transmission Date: 20100525
  Serious: No
  Sender: FDA-Public Use
  Company Number: US-BAYER-200916456BCC

PATIENT
  Age: 83 Year
  Sex: Female
  Weight: 61 kg

DRUGS (5)
  1. ALEVE (CAPLET) [Suspect]
     Indication: ARTHRALGIA
     Dosage: UNIT DOSE: 220 MG
     Route: 048
     Dates: start: 20091001, end: 20091001
  2. ALEVE (CAPLET) [Suspect]
     Dosage: TOTAL DAILY DOSE: 440 MG  UNIT DOSE: 220 MG
     Route: 048
     Dates: start: 20091102
  3. VITAMIN D SUPPLEMENT [Concomitant]
     Route: 065
  4. GLUCOSAMINE CHONDROITIN [Concomitant]
     Route: 065
  5. MULTI-VITAMIN [Concomitant]
     Route: 065

REACTIONS (1)
  - ARTHRALGIA [None]
